FAERS Safety Report 18417950 (Version 1)
Quarter: 2020Q4

REPORT INFORMATION
  Report Type: Report from Study
  Country: GB (occurrence: GB)
  Receive Date: 20201023
  Receipt Date: 20201023
  Transmission Date: 20210114
  Serious: Yes (Other)
  Sender: FDA-Public Use
  Company Number: GB-SAMSUNG BIOEPIS-SB-2020-29316

PATIENT
  Sex: Male

DRUGS (4)
  1. IMRALDI [Suspect]
     Active Substance: ADALIMUMAB
     Dosage: MAINTENANCE DOSE
     Route: 058
  2. IMRALDI [Suspect]
     Active Substance: ADALIMUMAB
     Indication: CROHN^S DISEASE
     Dosage: INDUCTION DOSE: WEEK ZERO
     Route: 058
     Dates: start: 20200902
  3. IMRALDI [Suspect]
     Active Substance: ADALIMUMAB
     Dosage: WEEK 2
     Route: 058
  4. IMRALDI [Suspect]
     Active Substance: ADALIMUMAB
     Dosage: WEEK 4
     Route: 058

REACTIONS (12)
  - Weight increased [Unknown]
  - Haemorrhage urinary tract [Unknown]
  - Rectal haemorrhage [Unknown]
  - Abdominal distension [Unknown]
  - Fear of injection [Unknown]
  - Fatigue [Unknown]
  - Nausea [Recovered/Resolved]
  - Bile acid malabsorption [Unknown]
  - Dizziness [Recovered/Resolved]
  - Crohn^s disease [Unknown]
  - Injection site pain [Unknown]
  - Feeling drunk [Unknown]
